FAERS Safety Report 22634847 (Version 1)
Quarter: 2023Q2

REPORT INFORMATION
  Report Type: Spontaneous
  Country: IT (occurrence: IT)
  Receive Date: 20230623
  Receipt Date: 20230623
  Transmission Date: 20230722
  Serious: Yes (Hospitalization, Other)
  Sender: FDA-Public Use
  Company Number: None

PATIENT
  Age: 66 Year
  Sex: Male

DRUGS (5)
  1. METFORMIN HYDROCHLORIDE [Suspect]
     Active Substance: METFORMIN HYDROCHLORIDE
     Indication: Diabetes mellitus
     Dosage: 500MG BREAKFAST, 1000MG LUNCH, 500MG DINNER
     Route: 048
     Dates: end: 20230516
  2. ASPIRIN [Concomitant]
     Active Substance: ASPIRIN
     Dosage: UNK
     Route: 065
  3. BISOPROLOL [Concomitant]
     Active Substance: BISOPROLOL
     Dosage: 1.25 MILLIGRAM, QD
     Route: 065
  4. DAPAGLIFLOZIN [Concomitant]
     Active Substance: DAPAGLIFLOZIN
     Dosage: 10 MILLIGRAM, QD
     Route: 048
     Dates: end: 20230516
  5. PANTOPRAZOLE SODIUM [Concomitant]
     Active Substance: PANTOPRAZOLE SODIUM
     Dosage: UNK
     Route: 048

REACTIONS (3)
  - Metabolic encephalopathy [Recovering/Resolving]
  - Ketoacidosis [Recovered/Resolved]
  - Melaena [Unknown]

NARRATIVE: CASE EVENT DATE: 20230516
